FAERS Safety Report 14561101 (Version 2)
Quarter: 2020Q3

REPORT INFORMATION
  Report Type: Report from Study
  Country: GB (occurrence: GB)
  Receive Date: 20180222
  Receipt Date: 20180511
  Transmission Date: 20201104
  Serious: Yes (Hospitalization, Other)
  Sender: FDA-Public Use
  Company Number: GB-ASTRAZENECA-2018SE21725

PATIENT
  Age: 20617 Day
  Sex: Male

DRUGS (22)
  1. MEDI4736 [Suspect]
     Active Substance: DURVALUMAB
     Indication: NON-SMALL CELL LUNG CANCER
     Dosage: 2100.0MG ONCE/SINGLE ADMINISTRATION
     Route: 042
     Dates: start: 20170413, end: 20170413
  2. MEDI4736 [Suspect]
     Active Substance: DURVALUMAB
     Indication: NON-SMALL CELL LUNG CANCER
     Dosage: 2075.0MG ONCE/SINGLE ADMINISTRATION
     Route: 042
     Dates: start: 20170511, end: 20170511
  3. MEDI4736 [Suspect]
     Active Substance: DURVALUMAB
     Indication: NON-SMALL CELL LUNG CANCER
     Dosage: 2075.0MG ONCE/SINGLE ADMINISTRATION
     Route: 042
     Dates: start: 20170831, end: 20170831
  4. TREMELIMUMAB. [Suspect]
     Active Substance: TREMELIMUMAB
     Indication: NON-SMALL CELL LUNG CANCER
     Dosage: 110.0MG ONCE/SINGLE ADMINISTRATION
     Route: 042
     Dates: start: 20160929, end: 20160929
  5. THYROXINE [Concomitant]
     Active Substance: LEVOTHYROXINE
     Indication: HYPOTHYROIDISM
     Route: 048
     Dates: start: 20170120, end: 20170510
  6. MEDI4736 [Suspect]
     Active Substance: DURVALUMAB
     Indication: NON-SMALL CELL LUNG CANCER
     Dosage: 2075.0MG ONCE/SINGLE ADMINISTRATION
     Route: 042
     Dates: start: 20170803, end: 20170803
  7. TREMELIMUMAB. [Suspect]
     Active Substance: TREMELIMUMAB
     Indication: NON-SMALL CELL LUNG CANCER
     Dosage: 110.0MG ONCE/SINGLE ADMINISTRATION
     Route: 042
     Dates: start: 20161027, end: 20161027
  8. MEDI4736 [Suspect]
     Active Substance: DURVALUMAB
     Indication: NON-SMALL CELL LUNG CANCER
     Dosage: 2100.0MG ONCE/SINGLE ADMINISTRATION
     Route: 042
     Dates: start: 20170217, end: 20170217
  9. TREMELIMUMAB. [Suspect]
     Active Substance: TREMELIMUMAB
     Indication: NON-SMALL CELL LUNG CANCER
     Dosage: 110.0MG ONCE/SINGLE ADMINISTRATION
     Route: 042
     Dates: start: 20161124, end: 20161124
  10. TREMELIMUMAB. [Suspect]
     Active Substance: TREMELIMUMAB
     Indication: NON-SMALL CELL LUNG CANCER
     Dosage: 100.0MG ONCE/SINGLE ADMINISTRATION
     Route: 042
     Dates: start: 20171123, end: 20171123
  11. MEDI4736 [Suspect]
     Active Substance: DURVALUMAB
     Indication: NON-SMALL CELL LUNG CANCER
     Dosage: 2100.0MG ONCE/SINGLE ADMINISTRATION
     Route: 042
     Dates: start: 20170317, end: 20170317
  12. MEDI4736 [Suspect]
     Active Substance: DURVALUMAB
     Indication: NON-SMALL CELL LUNG CANCER
     Dosage: 2150.0MG ONCE/SINGLE ADMINISTRATION
     Route: 042
     Dates: start: 20170120, end: 20170120
  13. MEDI4736 [Suspect]
     Active Substance: DURVALUMAB
     Indication: NON-SMALL CELL LUNG CANCER
     Dosage: 2075.0MG ONCE/SINGLE ADMINISTRATION
     Route: 042
     Dates: start: 20170608, end: 20170608
  14. MEDI4736 [Suspect]
     Active Substance: DURVALUMAB
     Indication: NON-SMALL CELL LUNG CANCER
     Dosage: 2150.0MG ONCE/SINGLE ADMINISTRATION
     Route: 042
     Dates: start: 20160929, end: 20160929
  15. TREMELIMUMAB. [Suspect]
     Active Substance: TREMELIMUMAB
     Indication: NON-SMALL CELL LUNG CANCER
     Dosage: 110.0MG ONCE/SINGLE ADMINISTRATION
     Route: 042
     Dates: start: 20160831, end: 20160831
  16. MEDI4736 [Suspect]
     Active Substance: DURVALUMAB
     Indication: NON-SMALL CELL LUNG CANCER
     Dosage: 2125.0MG ONCE/SINGLE ADMINISTRATION
     Route: 042
     Dates: start: 20161221, end: 20161221
  17. MEDI4736 [Suspect]
     Active Substance: DURVALUMAB
     Indication: NON-SMALL CELL LUNG CANCER
     Dosage: 2125.0MG ONCE/SINGLE ADMINISTRATION
     Route: 042
     Dates: start: 20161027, end: 20161027
  18. MEDI4736 [Suspect]
     Active Substance: DURVALUMAB
     Indication: NON-SMALL CELL LUNG CANCER
     Dosage: 2125.0MG ONCE/SINGLE ADMINISTRATION
     Route: 042
     Dates: start: 20161124, end: 20161124
  19. THYROXINE [Concomitant]
     Active Substance: LEVOTHYROXINE
     Indication: HYPOTHYROIDISM
     Route: 048
     Dates: start: 20170511
  20. MEDI4736 [Suspect]
     Active Substance: DURVALUMAB
     Indication: NON-SMALL CELL LUNG CANCER
     Dosage: 2125.0MG ONCE/SINGLE ADMINISTRATION
     Route: 042
     Dates: start: 20160831, end: 20160831
  21. MEDI4736 [Suspect]
     Active Substance: DURVALUMAB
     Indication: NON-SMALL CELL LUNG CANCER
     Dosage: 2050.0MG ONCE/SINGLE ADMINISTRATION
     Route: 042
     Dates: start: 20171123, end: 20171123
  22. MEDI4736 [Suspect]
     Active Substance: DURVALUMAB
     Indication: NON-SMALL CELL LUNG CANCER
     Dosage: 2075.0MG ONCE/SINGLE ADMINISTRATION
     Route: 042
     Dates: start: 20170706, end: 20170706

REACTIONS (1)
  - Immune-mediated hepatitis [Not Recovered/Not Resolved]

NARRATIVE: CASE EVENT DATE: 20180214
